FAERS Safety Report 8862780 (Version 1)
Quarter: 2012Q4

REPORT INFORMATION
  Report Type: Report from Study
  Country: GB (occurrence: GB)
  Receive Date: 20121026
  Receipt Date: 20121026
  Transmission Date: 20130627
  Serious: Yes (Other)
  Sender: FDA-Public Use
  Company Number: GB-JNJFOC-20121011569

PATIENT
  Age: 47 Year
  Sex: Male
  Weight: 131 kg

DRUGS (1)
  1. STELARA [Suspect]
     Indication: PSORIASIS
     Route: 058
     Dates: start: 20100817, end: 20120415

REACTIONS (1)
  - Plasma cell myeloma [Not Recovered/Not Resolved]
